FAERS Safety Report 5516756-0 (Version None)
Quarter: 2007Q4

REPORT INFORMATION
  Report Type: 
  Country: None (occurrence: None)
  Receive Date: 20071114
  Receipt Date: 20070509
  Transmission Date: 20080405
  Serious: No
  Sender: FDA-Public Use
  Company Number: A0650412A

PATIENT
  Age: 61 Year
  Sex: Female

DRUGS (1)
  1. COMMIT [Suspect]
     Indication: SMOKING CESSATION THERAPY
     Dosage: 9LOZ PER DAY
     Route: 002
     Dates: start: 20070501

REACTIONS (11)
  - ANXIETY [None]
  - DYSPHAGIA [None]
  - DYSPHONIA [None]
  - EUPHORIC MOOD [None]
  - ILL-DEFINED DISORDER [None]
  - OVERDOSE [None]
  - PALPITATIONS [None]
  - PSYCHOMOTOR HYPERACTIVITY [None]
  - SENSATION OF FOREIGN BODY [None]
  - STRESS [None]
  - TREMOR [None]
